FAERS Safety Report 19846546 (Version 2)
Quarter: 2021Q3

REPORT INFORMATION
  Report Type: Spontaneous
  Country: NO (occurrence: NO)
  Receive Date: 20210917
  Receipt Date: 20210923
  Transmission Date: 20211014
  Serious: Yes (Other)
  Sender: FDA-Public Use
  Company Number: NO-ROCHE-2909734

PATIENT
  Sex: Female

DRUGS (2)
  1. PERJETA [Suspect]
     Active Substance: PERTUZUMAB
     Indication: BREAST CANCER
     Route: 065
     Dates: start: 2018
  2. HERCEPTIN [Suspect]
     Active Substance: TRASTUZUMAB
     Indication: BREAST CANCER
     Route: 065
     Dates: start: 2018

REACTIONS (24)
  - Fatigue [Unknown]
  - Pyrexia [Unknown]
  - Nasal ulcer [Unknown]
  - Taste disorder [Unknown]
  - Stomatitis [Unknown]
  - Hypoaesthesia [Unknown]
  - Insomnia [Unknown]
  - Nail disorder [Unknown]
  - Noninfective gingivitis [Unknown]
  - Lacrimation increased [Unknown]
  - Breast disorder [Unknown]
  - Fear [Unknown]
  - Pain [Unknown]
  - Heart rate increased [Unknown]
  - Artificial menopause [Unknown]
  - Tendon injury [Unknown]
  - Pulmonary oedema [Unknown]
  - Alopecia [Not Recovered/Not Resolved]
  - Depressed mood [Unknown]
  - Dermatitis [Unknown]
  - Gastric disorder [Unknown]
  - Dyspnoea [Unknown]
  - Blood count abnormal [Unknown]
  - Generalised oedema [Unknown]
